FAERS Safety Report 4360562-X (Version None)
Quarter: 2004Q2

REPORT INFORMATION
  Report Type: 
  Country: None (occurrence: None)
  Receive Date: 20040519
  Receipt Date: 20040512
  Transmission Date: 20050107
  Serious: Yes (Congenital Anomaly)
  Sender: FDA-Public Use
  Company Number: AR-ROCHE-367534

PATIENT
  Sex: Female

DRUGS (3)
  1. ROACCUTANE [Suspect]
     Indication: ACNE
     Dates: start: 20030624, end: 20040115
  2. TEGRETOL [Suspect]
     Indication: EPILEPSY
     Dates: start: 20030615, end: 20040305
  3. CYPROTERONE/ETHINYLESTRADIOL [Concomitant]
     Indication: CONTRACEPTION
     Dosage: TDD: 2 MG AND 35 MCG
     Dates: start: 20030615, end: 20040305

REACTIONS (6)
  - CARDIAC DISORDER [None]
  - CONGENITAL ANOMALY [None]
  - EAR MALFORMATION [None]
  - FACIAL PALSY [None]
  - HEART DISEASE CONGENITAL [None]
  - MATERNAL DRUGS AFFECTING FOETUS [None]
